FAERS Safety Report 24173749 (Version 1)
Quarter: 2024Q3

REPORT INFORMATION
  Report Type: Report from Study
  Country: GB (occurrence: GB)
  Receive Date: 20240805
  Receipt Date: 20240805
  Transmission Date: 20241016
  Serious: Yes (Death, Hospitalization, Other)
  Sender: JOHNSON AND JOHNSON
  Company Number: GB-JNJFOC-20230514406

PATIENT
  Age: 9 Decade
  Sex: Female
  Weight: 72 kg

DRUGS (16)
  1. SELEXIPAG [Suspect]
     Active Substance: SELEXIPAG
     Indication: Pulmonary arterial hypertension
     Route: 048
     Dates: start: 20220330
  2. SELEXIPAG [Suspect]
     Active Substance: SELEXIPAG
     Route: 048
     Dates: start: 20220420
  3. SELEXIPAG [Suspect]
     Active Substance: SELEXIPAG
     Route: 048
     Dates: start: 20220511
  4. SELEXIPAG [Suspect]
     Active Substance: SELEXIPAG
     Route: 048
     Dates: start: 20220527
  5. SELEXIPAG [Suspect]
     Active Substance: SELEXIPAG
     Dosage: DISCONTINUED UPTRAVI TREATMENT SINCE LAST VISIT (10/NOV/2023)
     Route: 048
     Dates: start: 20220613, end: 20231110
  6. BOSENTAN [Suspect]
     Active Substance: BOSENTAN
     Indication: Pulmonary arterial hypertension
     Route: 048
     Dates: start: 20190406, end: 20210224
  7. BOSENTAN [Suspect]
     Active Substance: BOSENTAN
     Route: 048
     Dates: start: 20190306
  8. REVATIO [Concomitant]
     Active Substance: SILDENAFIL CITRATE
     Indication: Pulmonary arterial hypertension
     Route: 048
     Dates: start: 20200421
  9. REVATIO [Concomitant]
     Active Substance: SILDENAFIL CITRATE
     Route: 048
     Dates: start: 20190306
  10. REVATIO [Concomitant]
     Active Substance: SILDENAFIL CITRATE
     Route: 048
     Dates: start: 20161027
  11. OMEPRAZOLE [Concomitant]
     Active Substance: OMEPRAZOLE
     Indication: Gastrointestinal disorder therapy
     Route: 048
     Dates: start: 20200417
  12. ALENDRONIC ACID [Concomitant]
     Active Substance: ALENDRONIC ACID
     Indication: Prophylaxis
     Route: 048
     Dates: start: 20160714
  13. CHOLECALCIFEROL [Concomitant]
     Active Substance: CHOLECALCIFEROL
     Indication: Vitamin D deficiency
     Route: 048
     Dates: start: 20160630
  14. ASPIRIN [Concomitant]
     Active Substance: ASPIRIN
     Indication: Anticoagulant therapy
     Route: 048
     Dates: start: 20160210
  15. ALLOPURINOL [Concomitant]
     Active Substance: ALLOPURINOL
     Indication: Gout
     Route: 048
     Dates: start: 20150813
  16. LEVOTHYROXINE SODIUM [Concomitant]
     Active Substance: LEVOTHYROXINE SODIUM
     Indication: Hypothyroidism
     Route: 048
     Dates: start: 20140212

REACTIONS (11)
  - Death [Fatal]
  - Femur fracture [Recovered/Resolved]
  - SARS-CoV-2 test positive [Unknown]
  - Fall [Recovered/Resolved]
  - Joint injury [Recovered/Resolved]
  - Renal impairment [Unknown]
  - Eye contusion [Unknown]
  - Head injury [Unknown]
  - Oedema peripheral [Unknown]
  - Liver function test abnormal [Unknown]
  - Anaemia [Unknown]

NARRATIVE: CASE EVENT DATE: 20221211
